FAERS Safety Report 6151380-0 (Version None)
Quarter: 2009Q2

REPORT INFORMATION
  Report Type: 
  Country: None (occurrence: None)
  Receive Date: 20090410
  Receipt Date: 20090407
  Transmission Date: 20091009
  Serious: Yes (Life-Threatening, Other)
  Sender: FDA-Public Use
  Company Number: US-ROXANE LABORATORIES, INC.-2009-RO-00177RO

PATIENT
  Sex: Female
  Weight: 54 kg

DRUGS (13)
  1. PREDNISONE [Suspect]
     Indication: ASTHMA
     Dosage: 5MG
     Dates: start: 19820101
  2. PREDNISONE [Suspect]
     Indication: SINUSITIS
     Dosage: 20MG
  3. DIGOXIN [Concomitant]
  4. VITAMIN D [Concomitant]
  5. MAGNESIUM SULFATE [Concomitant]
  6. ZINC [Concomitant]
  7. CALCIUM [Concomitant]
  8. ATROVNET [Concomitant]
     Indication: BRONCHITIS CHRONIC
     Route: 055
  9. ATROVNET [Concomitant]
     Indication: CHRONIC SINUSITIS
  10. FLOVENT [Concomitant]
     Indication: BRONCHITIS CHRONIC
     Route: 055
  11. FLOVENT [Concomitant]
     Indication: CHRONIC SINUSITIS
  12. NASONEX [Concomitant]
     Indication: BRONCHITIS CHRONIC
     Route: 045
  13. NASONEX [Concomitant]
     Indication: CHRONIC SINUSITIS

REACTIONS (14)
  - ADRENAL DISORDER [None]
  - ASTHENIA [None]
  - BONE DENSITY DECREASED [None]
  - DRUG DEPENDENCE [None]
  - DRY EYE [None]
  - EYE DISORDER [None]
  - EYE PAIN [None]
  - INFECTION SUSCEPTIBILITY INCREASED [None]
  - MENINGITIS BACTERIAL [None]
  - MUSCLE ATROPHY [None]
  - OSTEOPOROSIS [None]
  - PNEUMONIA [None]
  - POOR QUALITY SLEEP [None]
  - SINUS HEADACHE [None]
